FAERS Safety Report 9159667 (Version 3)
Quarter: 2013Q1

REPORT INFORMATION
  Report Type: Spontaneous
  Country: SE (occurrence: None)
  Receive Date: 20130219
  Receipt Date: 20130318
  Transmission Date: 20140127
  Serious: Yes (Hospitalization)
  Sender: FDA-Public Use
  Company Number: SYM-2013-00630

PATIENT
  Age: 69 Year
  Sex: Male

DRUGS (14)
  1. FLUOROURACIL (FLUOROURACIL) (SOLUTION FOR INFUSION) (FLUOROURACIL) [Suspect]
     Indication: COLORECTAL CANCER METASTATIC
     Route: 040
     Dates: start: 20121211, end: 20121211
  2. AFLIBERCEPT (AFLIBERCEPT) (SOLUTION FOR INFUSION) (AFLIBERCEPT) [Suspect]
     Indication: COLORECTAL CANCER METASTATIC
     Route: 042
     Dates: start: 20121211, end: 20121211
  3. IRINOTECAN (IRINOTECAN) (SOLUTION FOR INFUSION) (IRINOTECAN) [Suspect]
     Indication: COLORECTAL CANCER METASTATIC
     Route: 042
     Dates: start: 20121211, end: 20121211
  4. LEUCOVORIN (FOLINIC ACID) (SOLUTION FOR INFUSION) (FOLINIC ACID) [Suspect]
     Indication: COLORECTAL CANCER METASTATIC
     Route: 042
     Dates: start: 20121211, end: 20121211
  5. DIURETICS (DIURETICS) [Concomitant]
  6. BETA BLOCKING AGENTS (BETA BLOCKING AGENTS) [Concomitant]
  7. ALLOPURINOL [Concomitant]
  8. OPIOIDS (OPIOIDS) [Concomitant]
  9. SPIRIVA (TIOTROPIUM BROMIDE)(TIOTROPIUM BROMIDE) [Concomitant]
  10. SYMBICORT FORTE (BUDESONIDE W/FORMOTEROL FUMARATE)(FORMOTEROL FUMARATE, BUDESONIDE) [Concomitant]
  11. METOCLOPRAMIDE (METOCLOPRAMIDE)(METOCLOPRAMIDE) [Concomitant]
  12. SEROTININ ANTAGONISTS (SEROTONIN ANTAGONISTS) [Concomitant]
  13. CORTICOSTEROIDS (CORTICOSTEROIDS) [Concomitant]
  14. PARACETAMOL (PARACETAMOL)(PARACETAMOL) [Concomitant]

REACTIONS (5)
  - Stomatitis [None]
  - Oral fungal infection [None]
  - Hypophagia [None]
  - Weight decreased [None]
  - Oral pain [None]
